FAERS Safety Report 5378249-3 (Version None)
Quarter: 2007Q3

REPORT INFORMATION
  Report Type: 
  Country: None (occurrence: None)
  Receive Date: 20070702
  Receipt Date: 20070622
  Transmission Date: 20080115
  Serious: Yes (Life-Threatening)
  Sender: FDA-Public Use
  Company Number: 20070161

PATIENT
  Age: 25 Year
  Sex: Female

DRUGS (1)
  1. VENOFER [Suspect]
     Indication: ANAEMIA
     Dosage: INTRAMUSCULAR
     Route: 030

REACTIONS (2)
  - ANAPHYLACTOID SHOCK [None]
  - INCORRECT DRUG ADMINISTRATION RATE [None]
